FAERS Safety Report 23350563 (Version 1)
Quarter: 2023Q4

REPORT INFORMATION
  Report Type: Report from Study
  Country: US (occurrence: None)
  Receive Date: 20231229
  Receipt Date: 20231229
  Transmission Date: 20240110
  Serious: Yes (Other)
  Sender: FDA-Public Use
  Company Number: 2023A291669

PATIENT
  Age: 818 Month
  Sex: Female

DRUGS (1)
  1. FASENRA [Suspect]
     Active Substance: BENRALIZUMAB
     Indication: Asthma
     Route: 058
     Dates: start: 20230722

REACTIONS (7)
  - Respiratory disorder [Recovered/Resolved]
  - Gastrointestinal disorder [Recovered/Resolved]
  - Diverticulitis [Unknown]
  - Diarrhoea [Unknown]
  - Blood electrolytes decreased [Recovering/Resolving]
  - Dyspnoea [Unknown]
  - Viral infection [Unknown]

NARRATIVE: CASE EVENT DATE: 20231001
